FAERS Safety Report 8881978 (Version 1)
Quarter: 2012Q4

REPORT INFORMATION
  Report Type: 
  Country: CA (occurrence: CA)
  Receive Date: 20121102
  Receipt Date: 20121102
  Transmission Date: 20130627
  Serious: No
  Sender: FDA-Public Use
  Company Number: PHHY2007CA011850

PATIENT

DRUGS (1)
  1. SANDOSTATIN LAR [Suspect]
     Dosage: UNK
     Dates: start: 20071004

REACTIONS (1)
  - No adverse event [Unknown]
